FAERS Safety Report 4905570-2 (Version None)
Quarter: 2006Q1

REPORT INFORMATION
  Report Type: 
  Country: None (occurrence: None)
  Receive Date: 20060203
  Receipt Date: 20060124
  Transmission Date: 20060701
  Serious: Yes (Disabling, Other)
  Sender: FDA-Public Use
  Company Number: 2006012194

PATIENT
  Age: 39 Year
  Sex: Female

DRUGS (3)
  1. NEURONTIN [Suspect]
     Indication: HEADACHE
     Dosage: 600 MG (4 IN 1 D)
  2. FLEXERIL [Concomitant]
  3. MIDRIN (DICHLORALPHENAZONE, ISOMETHEPTENE, PARACETAMOL) [Concomitant]

REACTIONS (7)
  - ABASIA [None]
  - AMNESIA [None]
  - CONVULSION [None]
  - DIZZINESS [None]
  - DYSARTHRIA [None]
  - UNEVALUABLE EVENT [None]
  - VISION BLURRED [None]
